FAERS Safety Report 10252126 (Version 2)
Quarter: 2014Q2

REPORT INFORMATION
  Report Type: Spontaneous
  Country: JO (occurrence: JO)
  Receive Date: 20140623
  Receipt Date: 20140623
  Transmission Date: 20141212
  Serious: Yes (Other)
  Sender: FDA-Public Use
  Company Number: PHHY2013JO119262

PATIENT
  Age: 31 Year
  Sex: Female

DRUGS (4)
  1. NEORAL [Suspect]
     Indication: RENAL TRANSPLANT
     Dosage: 150 MG, BID
     Dates: start: 201305
  2. CELLCEPT [Suspect]
     Dosage: UNK UKN, UNK
  3. IMURAN [Suspect]
     Dosage: 50 MG, BID
  4. PREDNI [Suspect]
     Dosage: 5 MG, QD

REACTIONS (2)
  - Abortion spontaneous [Unknown]
  - Maternal exposure during pregnancy [Unknown]
